FAERS Safety Report 7477786-5 (Version None)
Quarter: 2011Q2

REPORT INFORMATION
  Report Type: 
  Country: None (occurrence: None)
  Receive Date: 20110513
  Receipt Date: 20110502
  Transmission Date: 20111010
  Serious: Yes (Hospitalization)
  Sender: FDA-Public Use
  Company Number: KR-ELI_LILLY_AND_COMPANY-KR201103008779

PATIENT
  Age: 50 Year
  Sex: Male

DRUGS (3)
  1. HUMALOG MIX 75/25 [Suspect]
     Dosage: 6 U, EACH EVENING
  2. HUMALOG MIX 75/25 [Suspect]
     Indication: DIABETES MELLITUS
     Dosage: 32 U, EACH MORNING
     Route: 058
     Dates: start: 20110225
  3. HUMALOG MIX 75/25 [Suspect]
     Dosage: 16 U, EACH EVENING
     Dates: start: 20110225

REACTIONS (3)
  - COGNITIVE DISORDER [None]
  - HEPATIC HAEMORRHAGE [None]
  - HEPATIC FUNCTION ABNORMAL [None]
